FAERS Safety Report 9301027 (Version 3)
Quarter: 2013Q4

REPORT INFORMATION
  Report Type: Spontaneous
  Country: US (occurrence: US)
  Receive Date: 20130521
  Receipt Date: 20131008
  Transmission Date: 20140711
  Serious: Yes (Death)
  Sender: FDA-Public Use
  Company Number: US-PFIZER INC-2013151271

PATIENT
  Age: 66 Year
  Sex: Male
  Weight: 65.76 kg

DRUGS (1)
  1. VFEND [Suspect]
     Indication: BRONCHOPULMONARY ASPERGILLOSIS
     Dosage: 200 MG, 2X/DAY
     Route: 048
     Dates: start: 20130510

REACTIONS (3)
  - Lung neoplasm malignant [Fatal]
  - Gingival discolouration [Unknown]
  - Oral mucosal discolouration [Unknown]
